FAERS Safety Report 18366691 (Version 1)
Quarter: 2020Q4

REPORT INFORMATION
  Report Type: Spontaneous
  Country: BR (occurrence: BR)
  Receive Date: 20201009
  Receipt Date: 20201009
  Transmission Date: 20210114
  Serious: Yes (Other)
  Sender: FDA-Public Use
  Company Number: BR-DSJP-DSE-2020-128850

PATIENT
  Age: 82 Year
  Sex: Female
  Weight: 98 kg

DRUGS (3)
  1. OMEPRAZOLE. [Concomitant]
     Active Substance: OMEPRAZOLE
     Indication: GASTRITIS
     Dosage: UNK
     Route: 065
  2. BENICAR [Suspect]
     Active Substance: OLMESARTAN MEDOXOMIL
     Indication: HYPERTENSION
     Dosage: 20 MG, QD
     Route: 048
  3. CORTISONE [Suspect]
     Active Substance: CORTISONE
     Indication: CATARACT OPERATION
     Dosage: UNK
     Route: 047
     Dates: start: 2018

REACTIONS (6)
  - Hypertension [Unknown]
  - COVID-19 [Recovered/Resolved]
  - Balance disorder [Not Recovered/Not Resolved]
  - Dizziness [Not Recovered/Not Resolved]
  - Cataract operation [Unknown]
  - Weight increased [Unknown]

NARRATIVE: CASE EVENT DATE: 2018
